FAERS Safety Report 24145331 (Version 3)
Quarter: 2024Q3

REPORT INFORMATION
  Report Type: Spontaneous
  Country: BR (occurrence: BR)
  Receive Date: 20240729
  Receipt Date: 20240917
  Transmission Date: 20241017
  Serious: Yes (Life-Threatening, Disabling, Other)
  Sender: TAKEDA
  Company Number: BR-TAKEDA-2024TUS074095

PATIENT
  Age: 87 Year
  Sex: Female
  Weight: 60 kg

DRUGS (26)
  1. DEXILANT [Suspect]
     Active Substance: DEXLANSOPRAZOLE
     Indication: Cough
     Dosage: UNK UNK, QD
     Route: 048
     Dates: start: 2022
  2. DEXILANT [Suspect]
     Active Substance: DEXLANSOPRAZOLE
     Indication: Gastrooesophageal reflux disease
  3. JANUVIA [Suspect]
     Active Substance: SITAGLIPTIN PHOSPHATE
     Indication: Product used for unknown indication
     Dosage: UNK
     Route: 048
  4. JANUVIA [Concomitant]
     Active Substance: SITAGLIPTIN PHOSPHATE
     Indication: Diabetes mellitus
     Dosage: 100 MILLIGRAM, QD
  5. JANUVIA [Concomitant]
     Active Substance: SITAGLIPTIN PHOSPHATE
     Dosage: 50 MILLIGRAM, QD
  6. LEVOTHYROXINE [Concomitant]
     Active Substance: LEVOTHYROXINE\LEVOTHYROXINE SODIUM
     Indication: Hypothyroidism
     Dosage: 75 MILLIGRAM, QD
  7. GLIMEPIRIDE [Concomitant]
     Active Substance: GLIMEPIRIDE
     Indication: Type 2 diabetes mellitus
     Dosage: 2 MILLIGRAM, QD
  8. LOSARTAN [Concomitant]
     Active Substance: LOSARTAN\LOSARTAN POTASSIUM
     Indication: Hypertension
     Dosage: 50 MILLIGRAM, Q12H
  9. HYDROCHLOROTHIAZIDE [Concomitant]
     Active Substance: HYDROCHLOROTHIAZIDE
     Indication: Hypertension
     Dosage: 25 MILLIGRAM, QD
  10. AMLODIPINE [Concomitant]
     Active Substance: AMLODIPINE BESYLATE
     Dosage: UNK
  11. SPIRONOLACTONE [Concomitant]
     Active Substance: SPIRONOLACTONE
     Indication: Blood pressure abnormal
     Dosage: UNK
  12. OSCAL D [Concomitant]
     Active Substance: CALCIUM CARBONATE\CHOLECALCIFEROL
     Indication: Vitamin supplementation
     Dosage: 600 MILLIGRAM, QD
  13. DPREV [Concomitant]
     Indication: Vitamin D decreased
     Dosage: 1000 INTERNATIONAL UNIT, QD
  14. ZETIA [Concomitant]
     Active Substance: EZETIMIBE
     Indication: Nocturnal hypertension
     Dosage: 10 MILLIGRAM, QD
  15. Daflon [Concomitant]
     Indication: Vitamin supplementation
     Dosage: 500 MILLIGRAM, BID
  16. OMEPRAZOLE [Concomitant]
     Active Substance: OMEPRAZOLE
     Dosage: UNK
  17. ESOMEPRAZOLE MAGNESIUM [Concomitant]
     Active Substance: ESOMEPRAZOLE MAGNESIUM
     Indication: Abdominal pain upper
     Dosage: 40 MILLIGRAM, QD
  18. DOMPERIDONE [Concomitant]
     Active Substance: DOMPERIDONE
     Indication: Gastrooesophageal reflux disease
     Dosage: 10 MILLIGRAM, TID
  19. DOMPERIDONE [Concomitant]
     Active Substance: DOMPERIDONE
     Indication: Gastrointestinal disorder
  20. OXYBUTYNIN [Concomitant]
     Active Substance: OXYBUTYNIN\OXYBUTYNIN CHLORIDE
     Indication: Renal cyst
     Dosage: 5 MILLIGRAM, Q12H
  21. OXYBUTYNIN [Concomitant]
     Active Substance: OXYBUTYNIN\OXYBUTYNIN CHLORIDE
     Indication: Renal impairment
  22. DOXAZOSIN [Concomitant]
     Active Substance: DOXAZOSIN MESYLATE
     Indication: Renal cyst
     Dosage: 4 MILLIGRAM, QD
  23. DOXAZOSIN [Concomitant]
     Active Substance: DOXAZOSIN MESYLATE
     Indication: Renal impairment
  24. CLOPIDOGREL [Concomitant]
     Active Substance: CLOPIDOGREL BISULFATE
     Indication: Vasodilatation
     Dosage: 75 MILLIGRAM, QD
  25. TICLOPIDINE [Concomitant]
     Active Substance: TICLOPIDINE
     Indication: Vasodilatation
     Dosage: UNK
  26. DULOXETINE HYDROCHLORIDE [Concomitant]
     Active Substance: DULOXETINE HYDROCHLORIDE
     Indication: Pain
     Dosage: 60 MILLIGRAM, QD

REACTIONS (44)
  - Feeling abnormal [Unknown]
  - Aphonia [Recovering/Resolving]
  - Drug-induced liver injury [Recovered/Resolved]
  - Urinary retention [Unknown]
  - Cachexia [Unknown]
  - Bladder dysfunction [Unknown]
  - Pneumonia [Unknown]
  - Cholelithiasis [Unknown]
  - Tongue discolouration [Recovered/Resolved]
  - Eye colour change [Recovered/Resolved]
  - Weight decreased [Recovering/Resolving]
  - Vulvovaginal mycotic infection [Recovered/Resolved]
  - Spinal disorder [Unknown]
  - Musculoskeletal discomfort [Unknown]
  - Gait disturbance [Unknown]
  - Pleural effusion [Unknown]
  - Influenza like illness [Recovered/Resolved]
  - Dry skin [Recovered/Resolved]
  - Blister [Recovered/Resolved]
  - Mobility decreased [Unknown]
  - Renal cyst [Unknown]
  - Poor quality sleep [Unknown]
  - Hypoaesthesia [Unknown]
  - Abnormal dreams [Recovered/Resolved]
  - Pruritus [Recovered/Resolved]
  - Asthenia [Unknown]
  - Cough [Not Recovered/Not Resolved]
  - Skin discolouration [Recovered/Resolved]
  - Lower limb fracture [Unknown]
  - Off label use [Unknown]
  - Ankle fracture [Unknown]
  - Movement disorder [Unknown]
  - Peripheral swelling [Unknown]
  - Muscle atrophy [Unknown]
  - Malaise [Recovered/Resolved]
  - Loss of personal independence in daily activities [Unknown]
  - Dysgeusia [Unknown]
  - Tooth fracture [Unknown]
  - Toothache [Unknown]
  - Blood pressure increased [Recovered/Resolved]
  - Dysphonia [Recovering/Resolving]
  - Muscle spasms [Unknown]
  - Fall [Unknown]
  - Nasopharyngitis [Unknown]

NARRATIVE: CASE EVENT DATE: 20220901
